FAERS Safety Report 7009167-2 (Version None)
Quarter: 2010Q3

REPORT INFORMATION
  Report Type: 
  Country: None (occurrence: None)
  Receive Date: 20100921
  Receipt Date: 20100902
  Transmission Date: 20110219
  Serious: Yes (Other)
  Sender: FDA-Public Use
  Company Number: 2010P1001269

PATIENT
  Age: 27 Year
  Sex: Male
  Weight: 150 kg

DRUGS (3)
  1. CARBAMAZEPINE [Suspect]
     Indication: EPILEPSY
     Dosage: 1200 MG;QD; PO 800 MG;QD; PO
     Route: 048
  2. CARBAMAZEPINE [Suspect]
     Indication: EPILEPSY
     Dosage: 1200 MG;QD; PO 800 MG;QD; PO
     Route: 048
  3. MLULTIVITAMIN [Concomitant]

REACTIONS (3)
  - ANTICONVULSANT DRUG LEVEL BELOW THERAPEUTIC [None]
  - CONVULSION [None]
  - PRODUCT SUBSTITUTION ISSUE [None]
